FAERS Safety Report 14928742 (Version 2)
Quarter: 2018Q2

REPORT INFORMATION
  Report Type: Spontaneous
  Country: ES (occurrence: ES)
  Receive Date: 20180523
  Receipt Date: 20180611
  Transmission Date: 20180711
  Serious: Yes (Hospitalization)
  Sender: FDA-Public Use
  Company Number: ES-JNJFOC-20180524575

PATIENT
  Age: 73 Year
  Sex: Male

DRUGS (1)
  1. IMBRUVICA [Suspect]
     Active Substance: IBRUTINIB
     Indication: WALDENSTROM^S MACROGLOBULINAEMIA
     Route: 048
     Dates: start: 20180416

REACTIONS (5)
  - Hyponatraemia [Recovered/Resolved]
  - Diarrhoea [Recovered/Resolved]
  - Pulmonary oedema [Recovered/Resolved]
  - Atrial fibrillation [Recovered/Resolved]
  - Cognitive disorder [Recovered/Resolved]

NARRATIVE: CASE EVENT DATE: 20180509
